FAERS Safety Report 4433774-4 (Version None)
Quarter: 2004Q3

REPORT INFORMATION
  Report Type: 
  Country: None (occurrence: None)
  Receive Date: 20040824
  Receipt Date: 20040811
  Transmission Date: 20050211
  Serious: Yes (Life-Threatening, Hospitalization, Other)
  Sender: FDA-Public Use
  Company Number: 2003039990

PATIENT
  Sex: Female
  Weight: 95.2554 kg

DRUGS (3)
  1. NARDIL [Suspect]
     Indication: ILL-DEFINED DISORDER
     Dosage: ORAL
     Route: 048
  2. TRANYLCYPROMINE SULFATE (TRANYLCYPROMINE SULFATE) [Suspect]
     Indication: ILL-DEFINED DISORDER
  3. METOPROLOL SUCCINATE [Suspect]
     Indication: ILL-DEFINED DISORDER

REACTIONS (7)
  - BACK INJURY [None]
  - BLOOD PRESSURE INCREASED [None]
  - BODY HEIGHT DECREASED [None]
  - DEPRESSION [None]
  - MENOPAUSE [None]
  - PHARMACEUTICAL PRODUCT COMPLAINT [None]
  - ROAD TRAFFIC ACCIDENT [None]
